FAERS Safety Report 16822110 (Version 1)
Quarter: 2019Q4

REPORT INFORMATION
  Report Type: Spontaneous
  Country: US (occurrence: US)
  Receive Date: 20190918
  Receipt Date: 20190918
  Transmission Date: 20200122
  Serious: Yes (Disabling, Other)
  Sender: FDA-Public Use
  Company Number: None

PATIENT
  Age: 39 Year
  Sex: Female
  Weight: 65.25 kg

DRUGS (2)
  1. JANUVIA [Suspect]
     Active Substance: SITAGLIPTIN PHOSPHATE
     Indication: TYPE 2 DIABETES MELLITUS
     Dosage: ?          QUANTITY:30 TABLET(S);?
     Route: 048
  2. VITAMINS C D K A B12 [Concomitant]

REACTIONS (6)
  - Rash [None]
  - Joint swelling [None]
  - Alopecia [None]
  - Gastrointestinal inflammation [None]
  - Hormone level abnormal [None]
  - Skin exfoliation [None]

NARRATIVE: CASE EVENT DATE: 20190201
